FAERS Safety Report 21299574 (Version 1)
Quarter: 2022Q3

REPORT INFORMATION
  Report Type: Spontaneous
  Country: US (occurrence: None)
  Receive Date: 20220906
  Receipt Date: 20220906
  Transmission Date: 20221027
  Serious: Yes (Other)
  Sender: FDA-Public Use
  Company Number: None

PATIENT
  Age: 69 Year
  Sex: Male
  Weight: 89.81 kg

DRUGS (2)
  1. TEPEZZA [Suspect]
     Active Substance: TEPROTUMUMAB-TRBW
     Indication: Endocrine ophthalmopathy
     Dosage: OTHER FREQUENCY : 8 TIMES, EVERY 3 W;?
     Route: 042
     Dates: start: 202201, end: 202206
  2. TEPEZZA [Suspect]
     Active Substance: TEPROTUMUMAB-TRBW
     Indication: Diplopia

REACTIONS (10)
  - Infusion related reaction [None]
  - Muscle spasms [None]
  - Muscle spasms [None]
  - Walking aid user [None]
  - Wheelchair user [None]
  - Glycosylated haemoglobin increased [None]
  - Blood glucose increased [None]
  - Fatigue [None]
  - Headache [None]
  - Diplopia [None]

NARRATIVE: CASE EVENT DATE: 20220504
